FAERS Safety Report 17478266 (Version 4)
Quarter: 2022Q4

REPORT INFORMATION
  Report Type: Spontaneous
  Country: CA (occurrence: CA)
  Receive Date: 20200228
  Receipt Date: 20221212
  Transmission Date: 20230113
  Serious: Yes (Other)
  Sender: FDA-Public Use
  Company Number: CA-PFIZER INC-2020073322

PATIENT
  Age: 61 Year
  Sex: Female

DRUGS (6)
  1. XELJANZ XR [Suspect]
     Active Substance: TOFACITINIB CITRATE
     Indication: Rheumatoid arthritis
     Dosage: 11 MG, 1X/DAY
     Route: 048
     Dates: start: 20191112, end: 2020
  2. XELJANZ XR [Suspect]
     Active Substance: TOFACITINIB CITRATE
     Dosage: 11 MG, 1X/DAY
     Route: 048
     Dates: start: 2020
  3. FOLIC ACID [Concomitant]
     Active Substance: FOLIC ACID
     Dosage: UNK
  4. METHOTREXATE [Concomitant]
     Active Substance: METHOTREXATE
     Dosage: 0.8 ML
     Route: 058
     Dates: start: 2010
  5. METHOTREXATE [Concomitant]
     Active Substance: METHOTREXATE
     Dosage: 0.5 ML, WEEKLY
     Route: 058
  6. VITAMIN D3 [Concomitant]
     Active Substance: CHOLECALCIFEROL
     Dosage: UNK

REACTIONS (4)
  - Neoplasm malignant [Unknown]
  - Bronchitis [Unknown]
  - Nasal congestion [Unknown]
  - Blood glucose increased [Not Recovered/Not Resolved]
